FAERS Safety Report 4788881-3 (Version None)
Quarter: 2005Q4

REPORT INFORMATION
  Report Type: 
  Country: None (occurrence: None)
  Receive Date: 20051004
  Receipt Date: 20050922
  Transmission Date: 20060501
  Serious: Yes (Other)
  Sender: FDA-Public Use
  Company Number: 2005100709

PATIENT
  Age: 49 Year
  Sex: Female

DRUGS (4)
  1. ADRIAMYCIN PFS [Suspect]
     Indication: BREAST CANCER
     Dosage: 89 MG (CYCLICAL), INTRAVENOUS
     Route: 042
     Dates: start: 20010626, end: 20010829
  2. CYCLOPHOSPHAMIDE [Concomitant]
  3. KYTRIL [Concomitant]
  4. TAMOXIFEN CITRATE [Concomitant]

REACTIONS (1)
  - ANGINA PECTORIS [None]
